FAERS Safety Report 14630434 (Version 1)
Quarter: 2018Q1

REPORT INFORMATION
  Report Type: Spontaneous
  Country: BE (occurrence: BE)
  Receive Date: 20180313
  Receipt Date: 20180313
  Transmission Date: 20180509
  Serious: Yes (Life-Threatening, Other)
  Sender: FDA-Public Use
  Company Number: BE-ASPEN-GLO2018BE001891

PATIENT
  Age: 17 Year
  Sex: Female

DRUGS (7)
  1. DEXAMETHASONE. [Suspect]
     Active Substance: DEXAMETHASONE
     Indication: HISTIOCYTOSIS HAEMATOPHAGIC
     Dosage: 10 MG/M2 ON WEEK 1 AND 2
     Route: 065
  2. DEXAMETHASONE. [Suspect]
     Active Substance: DEXAMETHASONE
     Dosage: 5 MG/M2 ON WEEK 3 AND 4
     Route: 065
  3. CELLTOP [Suspect]
     Active Substance: ETOPOSIDE
     Dosage: 150 MG/M2 WEEK 2 (50 MG CAPSULE)
     Route: 065
  4. CELLTOP [Suspect]
     Active Substance: ETOPOSIDE
     Dosage: 150 MG/M2 WEEK 1 (50 MG CAPSULE)
     Route: 065
  5. RITUXIMAB. [Suspect]
     Active Substance: RITUXIMAB
     Dosage: 375 MG/M2 WEEK (01-05)
     Route: 065
  6. RITUXIMAB. [Suspect]
     Active Substance: RITUXIMAB
     Indication: HISTIOCYTOSIS HAEMATOPHAGIC
  7. CELLTOP [Suspect]
     Active Substance: ETOPOSIDE
     Indication: EPSTEIN-BARR VIRUS INFECTION
     Dosage: 75 MG/M2 WEEK 1 (50 MG CAPSULE)
     Route: 065

REACTIONS (4)
  - Bronchopulmonary aspergillosis [Recovered/Resolved]
  - Aspergillus infection [Recovered/Resolved]
  - Abdominal infection [Recovered/Resolved]
  - Neutropenia [Recovered/Resolved]
